FAERS Safety Report 8340960-X (Version None)
Quarter: 2012Q2

REPORT INFORMATION
  Report Type: 
  Country: None (occurrence: None)
  Receive Date: 20120507
  Receipt Date: 20060216
  Transmission Date: 20120825
  Serious: Yes (Hospitalization)
  Sender: FDA-Public Use
  Company Number: FR-ROCHE-GNE222257

PATIENT
  Age: 71 Year
  Sex: Female

DRUGS (8)
  1. DOXORUBICIN HCL [Suspect]
     Indication: PRODUCT USED FOR UNKNOWN INDICATION
     Dosage: 63 MG, UNK
     Route: 042
     Dates: start: 20051109, end: 20051109
  2. PREDNISONE TAB [Suspect]
     Indication: PRODUCT USED FOR UNKNOWN INDICATION
     Dosage: 54.4 MG, QD
     Route: 048
     Dates: start: 20051110, end: 20051113
  3. ZOFRAN [Concomitant]
     Indication: PRODUCT USED FOR UNKNOWN INDICATION
     Dosage: 8 MG, UNK
     Route: 042
  4. VINCRISTINE [Suspect]
     Indication: PRODUCT USED FOR UNKNOWN INDICATION
     Dosage: 1.8 MG, UNK
     Route: 042
     Dates: start: 20051109, end: 20051109
  5. CYCLOPHOSPHAMIDE [Suspect]
     Indication: PRODUCT USED FOR UNKNOWN INDICATION
     Dosage: 910 MG, UNK
     Route: 042
     Dates: start: 20051109, end: 20051109
  6. MABTHERA [Suspect]
     Indication: LYMPHOMA
     Dosage: 455 MG, UNK
     Route: 042
     Dates: start: 20051109, end: 20051109
  7. POLARAMINE [Suspect]
     Indication: PRODUCT USED FOR UNKNOWN INDICATION
     Dosage: 5 MG, UNK
     Route: 042
     Dates: start: 20051109, end: 20051109
  8. SOLU-MEDROL [Concomitant]
     Indication: PRODUCT USED FOR UNKNOWN INDICATION
     Dosage: 73 MG, UNK
     Route: 042

REACTIONS (1)
  - BONE MARROW FAILURE [None]
